FAERS Safety Report 13793265 (Version 2)
Quarter: 2017Q3

REPORT INFORMATION
  Report Type: Spontaneous
  Country: US (occurrence: US)
  Receive Date: 20170726
  Receipt Date: 20170731
  Transmission Date: 20171127
  Serious: Yes (Hospitalization)
  Sender: FDA-Public Use
  Company Number: US-BIOGEN-2017BI00436580

PATIENT
  Sex: Male

DRUGS (1)
  1. TYSABRI [Suspect]
     Active Substance: NATALIZUMAB
     Indication: MULTIPLE SCLEROSIS
     Route: 042
     Dates: start: 20090617, end: 20161024

REACTIONS (4)
  - Foot deformity [Recovered/Resolved]
  - Toe amputation [Recovered/Resolved]
  - Decubitus ulcer [Unknown]
  - Wound [Not Recovered/Not Resolved]
